FAERS Safety Report 11776369 (Version 1)
Quarter: 2015Q4

REPORT INFORMATION
  Report Type: Spontaneous
  Country: CA (occurrence: CA)
  Receive Date: 20151125
  Receipt Date: 20151125
  Transmission Date: 20160304
  Serious: Yes (Disabling)
  Sender: FDA-Public Use
  Company Number: CA-TEVA-611436ACC

PATIENT
  Age: 26 Year
  Sex: Female
  Weight: 63.56 kg

DRUGS (3)
  1. CYCLOBENZAPRINE [Suspect]
     Active Substance: CYCLOBENZAPRINE
     Indication: BONE PAIN
     Dosage: 10 MILLIGRAM DAILY;
     Route: 048
  2. TYLENOL WITH CODEINE [Concomitant]
     Active Substance: ACETAMINOPHEN\CODEINE PHOSPHATE
  3. MELOXICAM. [Suspect]
     Active Substance: MELOXICAM
     Indication: BONE PAIN
     Dosage: 15 MILLIGRAM DAILY;
     Route: 048

REACTIONS (1)
  - Suppressed lactation [Not Recovered/Not Resolved]
